FAERS Safety Report 21054987 (Version 1)
Quarter: 2022Q3

REPORT INFORMATION
  Report Type: Report from Study
  Country: US (occurrence: None)
  Receive Date: 20220707
  Receipt Date: 20220707
  Transmission Date: 20221027
  Serious: Yes (Other)
  Sender: FDA-Public Use
  Company Number: US-ROCHE-3128269

PATIENT

DRUGS (2)
  1. ATEZOLIZUMAB [Suspect]
     Active Substance: ATEZOLIZUMAB
     Indication: Neoplasm
     Route: 042
  2. TIVOZANIB [Suspect]
     Active Substance: TIVOZANIB
     Indication: Neoplasm
     Route: 065
     Dates: start: 20220618

REACTIONS (1)
  - Hypertension [Unknown]
